FAERS Safety Report 13999113 (Version 2)
Quarter: 2017Q4

REPORT INFORMATION
  Report Type: Report from Study
  Country: None (occurrence: AT)
  Receive Date: 20170922
  Receipt Date: 20171017
  Transmission Date: 20180321
  Serious: Yes (Hospitalization)
  Sender: FDA-Public Use
  Company Number: AT-ABBVIE-17K-009-2110491-00

PATIENT
  Age: 78 Year
  Sex: Female

DRUGS (2)
  1. DUODOPA [Suspect]
     Active Substance: CARBIDOPA\LEVODOPA
     Dosage: 16 H THERAPY:?MD 9 ML; KR DAYTIME 2.8 ML/H, ED 2ML
     Route: 050
     Dates: start: 201710
  2. DUODOPA [Suspect]
     Active Substance: CARBIDOPA\LEVODOPA
     Indication: PARKINSON^S DISEASE
     Dosage: 16H THERAPY??MD: 9ML; CR DAYTIME: 3.2ML/H; ED 2ML;
     Route: 050
     Dates: start: 20150209, end: 201710

REACTIONS (2)
  - Femoral neck fracture [Recovering/Resolving]
  - Hyperkinesia [Recovering/Resolving]

NARRATIVE: CASE EVENT DATE: 20170919
